FAERS Safety Report 16476820 (Version 1)
Quarter: 2019Q2

REPORT INFORMATION
  Report Type: Report from Study
  Country: US (occurrence: US)
  Receive Date: 20190626
  Receipt Date: 20190626
  Transmission Date: 20190711
  Serious: Yes (Death, Hospitalization)
  Sender: FDA-Public Use
  Company Number: US-CELGENEUS-USA-2017039522

PATIENT
  Age: 71 Year
  Sex: Male
  Weight: 94.1 kg

DRUGS (2)
  1. VIDAZA [Suspect]
     Active Substance: AZACITIDINE
     Indication: MYELODYSPLASTIC SYNDROME
     Dosage: 153 MILLIGRAM
     Route: 058
     Dates: start: 20160822, end: 20160901
  2. VIDAZA [Suspect]
     Active Substance: AZACITIDINE
     Indication: ACUTE MYELOID LEUKAEMIA

REACTIONS (3)
  - Anaemia [Not Recovered/Not Resolved]
  - Pyrexia [Fatal]
  - Wound [Recovered/Resolved]

NARRATIVE: CASE EVENT DATE: 20160822
